FAERS Safety Report 16944996 (Version 3)
Quarter: 2020Q1

REPORT INFORMATION
  Report Type: Spontaneous
  Country: CN (occurrence: CN)
  Receive Date: 20191022
  Receipt Date: 20200110
  Transmission Date: 20200409
  Serious: Yes (Other)
  Sender: FDA-Public Use
  Company Number: CN-ELI_LILLY_AND_COMPANY-CN201910006729

PATIENT
  Age: 51 Year
  Sex: Male
  Weight: 70 kg

DRUGS (8)
  1. HUMALOG [Suspect]
     Active Substance: INSULIN LISPRO
     Dosage: 7 INTERNATIONAL UNIT, DAILY
     Route: 058
     Dates: start: 201912
  2. HUMALOG [Suspect]
     Active Substance: INSULIN LISPRO
     Dosage: 5 INTERNATIONAL UNIT, BID (MORNING AND NOON)
     Route: 058
     Dates: start: 201908
  3. HUMALOG [Suspect]
     Active Substance: INSULIN LISPRO
     Dosage: 5 INTERNATIONAL UNIT, BID (NOON AND NOON)
     Route: 058
     Dates: start: 201909
  4. HUMALOG [Suspect]
     Active Substance: INSULIN LISPRO
     Dosage: 4 INTERNATIONAL UNIT, EACH EVENING
     Dates: start: 201908
  5. HUMALOG [Suspect]
     Active Substance: INSULIN LISPRO
     Dosage: 5 INTERNATIONAL UNIT, DAILY
     Route: 058
  6. HUMALOG [Suspect]
     Active Substance: INSULIN LISPRO
     Dosage: 5 INTERNATIONAL UNIT, BID (MORNING AND NOON)
     Route: 058
     Dates: start: 201909
  7. HUMALOG [Suspect]
     Active Substance: INSULIN LISPRO
     Indication: DIABETES MELLITUS
     Dosage: 5 INTERNATIONAL UNIT, BID (MORNING AND NOON)
     Dates: start: 201908
  8. HUMALOG [Suspect]
     Active Substance: INSULIN LISPRO
     Dosage: 4 INTERNATIONAL UNIT, EACH EVENING
     Route: 058
     Dates: start: 201909

REACTIONS (5)
  - Haemorrhoids [Unknown]
  - Product dose omission [Unknown]
  - Anal prolapse [Unknown]
  - Drug ineffective [Unknown]
  - Blood glucose increased [Unknown]
